FAERS Safety Report 4614385-4 (Version None)
Quarter: 2005Q2

REPORT INFORMATION
  Report Type: 
  Country: None (occurrence: None)
  Receive Date: 20050307
  Receipt Date: 20050125
  Transmission Date: 20051028
  Serious: Yes (Other)
  Sender: FDA-Public Use
  Company Number: US_0501111492

PATIENT

DRUGS (2)
  1. ALIMITA (PEMETREXED) [Suspect]
     Indication: MESOTHELIOMA
  2. CISPLATIN [Concomitant]

REACTIONS (1)
  - RENAL FAILURE [None]
